FAERS Safety Report 7423659-3 (Version None)
Quarter: 2011Q2

REPORT INFORMATION
  Report Type: 
  Country: None (occurrence: None)
  Receive Date: 20110411
  Receipt Date: 20110331
  Transmission Date: 20111010
  Serious: Yes (Other)
  Sender: FDA-Public Use
  Company Number: MC201100142

PATIENT
  Age: 50 Year

DRUGS (3)
  1. CLOPIDOGREL [Concomitant]
  2. ANGIOMAX [Suspect]
     Indication: PERCUTANEOUS CORONARY INTERVENTION
     Dosage: BOLUS, INTRAVENOUS ; INFUSION, INTRAVENOUS
     Route: 042
     Dates: start: 20110201, end: 20110201
  3. ANGIOMAX [Suspect]
     Indication: PERCUTANEOUS CORONARY INTERVENTION
     Dosage: BOLUS, INTRAVENOUS ; INFUSION, INTRAVENOUS
     Route: 042
     Dates: start: 20110201, end: 20110201

REACTIONS (1)
  - VENOUS THROMBOSIS [None]
